FAERS Safety Report 25684941 (Version 1)
Quarter: 2025Q3

REPORT INFORMATION
  Report Type: Spontaneous
  Country: EU (occurrence: EU)
  Receive Date: 20250815
  Receipt Date: 20250815
  Transmission Date: 20251020
  Serious: Yes (Congenital Anomaly, Other)
  Sender: ALK-ABELLO
  Company Number: EU-EMB-M202401872-1

PATIENT

DRUGS (3)
  1. GRAZAX [Suspect]
     Active Substance: PHLEUM PRATENSE POLLEN
     Indication: Immune tolerance induction
     Route: 064
     Dates: start: 202401, end: 202411
  2. Tetesept Fols?ure [Concomitant]
     Indication: Prophylaxis of neural tube defect
     Route: 064
     Dates: start: 202402, end: 202411
  3. FOLIC ACID [Concomitant]
     Active Substance: FOLIC ACID

REACTIONS (3)
  - Congenital hydronephrosis [Recovering/Resolving]
  - Foetal exposure during pregnancy [Unknown]
  - Maternal exposure during pregnancy [Unknown]

NARRATIVE: CASE EVENT DATE: 20241101
